FAERS Safety Report 7605093-6 (Version None)
Quarter: 2011Q3

REPORT INFORMATION
  Report Type: 
  Country: None (occurrence: None)
  Receive Date: 20110713
  Receipt Date: 20100116
  Transmission Date: 20111222
  Serious: Yes (Death, Other)
  Sender: FDA-Public Use
  Company Number: US-BAYER-201011228NA

PATIENT
  Sex: Male
  Weight: 96 kg

DRUGS (26)
  1. SULFAMETHOXAZOLE AND TRIMETHOPRIM [Concomitant]
     Dosage: UNK
     Dates: start: 20000301, end: 20020802
  2. TRASYLOL [Suspect]
     Indication: CORONARY ARTERY BYPASS
     Route: 042
     Dates: start: 20030116
  3. AVALIDE [Concomitant]
     Dosage: 300 / 12.5 MG /DAILY
     Route: 048
     Dates: start: 20021123
  4. INTEGRILIN [Concomitant]
     Dosage: UNK
     Route: 042
     Dates: start: 20030112
  5. NORVASC [Concomitant]
     Dosage: 10MG
     Route: 048
  6. LIPITOR [Concomitant]
     Dosage: 20 MG
     Route: 048
  7. CLONIDINE [Concomitant]
     Dosage: 0.3MG
     Route: 048
  8. IMDUR [Concomitant]
     Dosage: 60 MG, QD
     Route: 048
     Dates: start: 20021208
  9. HEPARIN [Concomitant]
     Dosage: 10,000 UNITS
     Route: 042
     Dates: start: 20030116
  10. PENICILLIN [Concomitant]
     Dosage: UNK
     Dates: start: 19990101
  11. DOXYCYCLINE [Concomitant]
     Dosage: UNK
     Dates: start: 20010701
  12. AVAPRO [Concomitant]
     Dosage: 150 MG, QD
     Route: 048
     Dates: start: 20021004
  13. PLAVIX [Concomitant]
     Dosage: 75 MG, QD
     Route: 048
     Dates: start: 20020901
  14. CALCIUM CHLORIDE [Concomitant]
     Dosage: UNK
     Route: 042
     Dates: start: 20030116
  15. LEVOPHED [Concomitant]
     Dosage: UNK
     Route: 042
     Dates: start: 20030116
  16. GLUCOPHAGE [Concomitant]
     Dosage: 500 MG, BID
     Route: 048
  17. ANCEF [Concomitant]
     Dosage: 1 GRAM
     Route: 042
     Dates: start: 20030116
  18. MILRINONE [Concomitant]
     Dosage: UNK
     Route: 042
     Dates: start: 20030116
  19. IBUPROFEN [Concomitant]
     Dosage: UNK
     Dates: start: 19980101
  20. BEXTRA [Concomitant]
     Dosage: UNK
     Dates: start: 20020301
  21. VIOXX [Concomitant]
  22. ACETYLSALICYLIC ACID SRT [Concomitant]
  23. VANCOMYCIN [Concomitant]
  24. ZOCOR [Concomitant]
     Dosage: 20 MG, QD
     Route: 048
  25. ATENOLOL [Concomitant]
     Dosage: 50 MG, BID
     Route: 048
     Dates: start: 20010830
  26. CEPHALEXIN [Concomitant]
     Dosage: UNK
     Dates: start: 20020101, end: 20021101

REACTIONS (14)
  - RENAL FAILURE [None]
  - RENAL INJURY [None]
  - ORGAN FAILURE [None]
  - ANHEDONIA [None]
  - CEREBROVASCULAR ACCIDENT [None]
  - PAIN [None]
  - INJURY [None]
  - RENAL IMPAIRMENT [None]
  - CARDIAC DISORDER [None]
  - FEAR [None]
  - ANXIETY [None]
  - DEPRESSION [None]
  - DEATH [None]
  - UNEVALUABLE EVENT [None]
